FAERS Safety Report 8850929 (Version 1)
Quarter: 2012Q4

REPORT INFORMATION
  Report Type: 
  Country: CO (occurrence: CO)
  Receive Date: 20121019
  Receipt Date: 20121019
  Transmission Date: 20130627
  Serious: Yes (Hospitalization, Other)
  Sender: FDA-Public Use
  Company Number: CO-JNJFOC-20121008319

PATIENT
  Age: 32 Year
  Sex: Female

DRUGS (6)
  1. TOPIRAMATE [Suspect]
     Indication: EPILEPSY
     Route: 048
  2. TOPIRAMATE [Suspect]
     Indication: EPILEPSY
     Route: 048
  3. MIDAZOLAM [Suspect]
     Indication: EPILEPSY
     Route: 065
  4. VALPROIC ACID [Interacting]
     Indication: EPILEPSY
     Dosage: 1500 mg bolus
     Route: 065
  5. PHENOBARBITAL [Interacting]
     Indication: EPILEPSY
     Route: 065
  6. PHENOBARBITAL [Interacting]
     Indication: EPILEPSY
     Dosage: 1g bolus
     Route: 065

REACTIONS (2)
  - Hyperammonaemic encephalopathy [Recovered/Resolved]
  - Drug interaction [Recovered/Resolved]
